FAERS Safety Report 11758894 (Version 3)
Quarter: 2016Q1

REPORT INFORMATION
  Report Type: Spontaneous
  Country: US (occurrence: US)
  Receive Date: 20151120
  Receipt Date: 20160222
  Transmission Date: 20160525
  Serious: Yes (Other)
  Sender: FDA-Public Use
  Company Number: US-SMITH AND NEPHEW, INC-2015SMT00534

PATIENT
  Age: 78 Year
  Sex: Male
  Weight: 83.9 kg

DRUGS (3)
  1. REGRANEX [Suspect]
     Active Substance: BECAPLERMIN
     Indication: DIABETIC FOOT
     Dosage: UNK, 1X/DAY
     Dates: end: 20151102
  2. INSULIN [Concomitant]
     Active Substance: INSULIN NOS
  3. UNSPECIFIED HIGH BLOOD PRESSURE MEDICATION [Concomitant]
     Active Substance: UNSPECIFIED INGREDIENT

REACTIONS (8)
  - Diastolic dysfunction [Unknown]
  - Blister [Unknown]
  - Osteomyelitis [Recovered/Resolved with Sequelae]
  - Hyponatraemia [Recovering/Resolving]
  - Dyslipidaemia [Unknown]
  - Toe amputation [Recovered/Resolved with Sequelae]
  - Left ventricular hypertrophy [Unknown]
  - Enterobacter test positive [Unknown]

NARRATIVE: CASE EVENT DATE: 201511
